FAERS Safety Report 8554114-5 (Version None)
Quarter: 2012Q3

REPORT INFORMATION
  Report Type: 
  Country: None (occurrence: None)
  Receive Date: 20120731
  Receipt Date: 20120726
  Transmission Date: 20120928
  Serious: Yes (Hospitalization)
  Sender: FDA-Public Use
  Company Number: PHHY2012MX065187

PATIENT
  Sex: Female

DRUGS (4)
  1. TRAMADOL HYDROCHLORIDE [Concomitant]
     Dosage: 2 DF, DAILY
  2. COZAAR [Concomitant]
     Dosage: 2 DF, DAILY
  3. ACETAMINOPHEN [Concomitant]
     Dosage: 2 DF, UNK
  4. ZOLEDRONOC ACID [Suspect]
     Indication: OSTEOPOROSIS
     Dosage: 5 MG, YEARLY
     Route: 042
     Dates: start: 20120126

REACTIONS (2)
  - DEFAECATION URGENCY [None]
  - ANAL HAEMORRHAGE [None]
